FAERS Safety Report 14011254 (Version 1)
Quarter: 2017Q3

REPORT INFORMATION
  Report Type: Spontaneous
  Country: US (occurrence: None)
  Receive Date: 20170926
  Receipt Date: 20170926
  Transmission Date: 20171128
  Serious: Yes (Hospitalization)
  Sender: FDA-Public Use
  Company Number: None

PATIENT
  Age: 14 Year
  Sex: Male
  Weight: 57.1 kg

DRUGS (1)
  1. CLOLAR [Suspect]
     Active Substance: CLOFARABINE
     Dates: end: 20140908

REACTIONS (4)
  - Gram stain positive [None]
  - White blood cell count decreased [None]
  - Pyrexia [None]
  - Blood culture positive [None]

NARRATIVE: CASE EVENT DATE: 20140914
